FAERS Safety Report 16434263 (Version 1)
Quarter: 2019Q2

REPORT INFORMATION
  Report Type: Spontaneous
  Country: JP (occurrence: JP)
  Receive Date: 20190614
  Receipt Date: 20190614
  Transmission Date: 20190711
  Serious: Yes (Death, Other)
  Sender: FDA-Public Use
  Company Number: JP-GUERBET-JP-20190066

PATIENT
  Age: 64 Year
  Sex: Male

DRUGS (3)
  1. LIPIODOL [Suspect]
     Active Substance: ETHIODIZED OIL
     Indication: THERAPEUTIC EMBOLISATION
     Route: 013
  2. HISTOACRYL [Concomitant]
     Active Substance: ENBUCRILATE
     Indication: THERAPEUTIC EMBOLISATION
     Route: 013
  3. GELATIN [Concomitant]
     Active Substance: GELATIN
     Indication: THERAPEUTIC EMBOLISATION
     Route: 013

REACTIONS (3)
  - Pneumonia aspiration [Fatal]
  - Intestinal haemorrhage [Unknown]
  - Product use in unapproved indication [Unknown]
